FAERS Safety Report 11618505 (Version 1)
Quarter: 2015Q4

REPORT INFORMATION
  Report Type: Spontaneous
  Country: US (occurrence: US)
  Receive Date: 20151012
  Receipt Date: 20151012
  Transmission Date: 20160304
  Serious: No
  Sender: FDA-Public Use
  Company Number: US-GLENMARK PHARMACEUTICALS INC, USA.-2015GMK018221

PATIENT

DRUGS (10)
  1. GABAPENTIN. [Suspect]
     Active Substance: GABAPENTIN
     Indication: PARAESTHESIA
     Dosage: UNK
  2. DIGOXIN. [Concomitant]
     Active Substance: DIGOXIN
     Indication: CARDIAC FAILURE CONGESTIVE
     Dosage: UNK
  3. LOVASTATIN. [Concomitant]
     Active Substance: LOVASTATIN
     Indication: BLOOD CHOLESTEROL INCREASED
     Dosage: UNK, QD
     Route: 048
  4. GABAPENTIN. [Suspect]
     Active Substance: GABAPENTIN
     Dosage: 6 DF, HS 3 TABLETS 1 HOUR BEFORE BED AND 3 TABLETS RIGHT BEFORE GOING TO BED
     Route: 048
  5. LASIX [Concomitant]
     Active Substance: FUROSEMIDE
     Indication: FLUID RETENTION
     Dosage: UNK
  6. WARFARIN [Concomitant]
     Active Substance: WARFARIN
     Indication: ESSENTIAL HYPERTENSION
     Dosage: UNK
     Route: 048
  7. HYDROXYUREA. [Concomitant]
     Active Substance: HYDROXYUREA
     Indication: POLYCYTHAEMIA VERA
     Dosage: UNK, QD
     Route: 048
  8. ADCIRCA [Concomitant]
     Active Substance: TADALAFIL
     Indication: ESSENTIAL HYPERTENSION
     Dosage: UNK, QD
     Route: 048
  9. WARFARIN [Concomitant]
     Active Substance: WARFARIN
     Indication: POLYCYTHAEMIA VERA
  10. OPSUMIT [Concomitant]
     Active Substance: MACITENTAN
     Indication: ESSENTIAL HYPERTENSION
     Dosage: UNK, QD
     Route: 048

REACTIONS (2)
  - Off label use [Unknown]
  - Intentional product use issue [Unknown]
